FAERS Safety Report 8276701-4 (Version None)
Quarter: 2012Q2

REPORT INFORMATION
  Report Type: 
  Country: None (occurrence: None)
  Receive Date: 20120412
  Receipt Date: 20120412
  Transmission Date: 20120825
  Serious: No
  Sender: FDA-Public Use
  Company Number: None

PATIENT
  Age: 53 Year
  Sex: Male
  Weight: 133.8 kg

DRUGS (2)
  1. CYMBALTA [Suspect]
     Indication: BACK PAIN
     Route: 048
  2. CYMBALTA [Suspect]
     Indication: DEPRESSION
     Route: 048

REACTIONS (3)
  - BRUXISM [None]
  - TOOTH LOSS [None]
  - DRUG DOSE OMISSION [None]
